FAERS Safety Report 17253527 (Version 3)
Quarter: 2020Q2

REPORT INFORMATION
  Report Type: Report from Study
  Country: US (occurrence: US)
  Receive Date: 20200109
  Receipt Date: 20200605
  Transmission Date: 20200713
  Serious: Yes (Hospitalization)
  Sender: FDA-Public Use
  Company Number: US-ACTELION-A-NJ2019-193758

PATIENT
  Age: 82 Year
  Sex: Female
  Weight: 74.38 kg

DRUGS (1)
  1. OPSUMIT [Suspect]
     Active Substance: MACITENTAN
     Indication: PULMONARY ARTERIAL HYPERTENSION
     Dosage: 10 MG, QD
     Route: 048

REACTIONS (10)
  - Urinary tract infection [Unknown]
  - Haematochezia [Unknown]
  - Asthenia [Unknown]
  - Movement disorder [Unknown]
  - Transfusion [Unknown]
  - Dehydration [Unknown]
  - Peripheral swelling [Unknown]
  - Infection [Unknown]
  - Intestinal haemorrhage [Unknown]
  - Vomiting [Unknown]

NARRATIVE: CASE EVENT DATE: 20190717
